FAERS Safety Report 6660495-X (Version None)
Quarter: 2010Q1

REPORT INFORMATION
  Report Type: 
  Country: None (occurrence: None)
  Receive Date: 20100331
  Receipt Date: 20100322
  Transmission Date: 20100710
  Serious: Yes (Other)
  Sender: FDA-Public Use
  Company Number: PHEH2006US15196

PATIENT
  Sex: Male

DRUGS (16)
  1. ZOMETA [Suspect]
     Indication: METASTATIC NEOPLASM
     Dosage: 4 MG, QMO
     Dates: start: 20020101, end: 20040701
  2. CIMETIDINE [Concomitant]
     Dosage: 400 MG, BID
  3. MOTRIN [Concomitant]
     Dosage: 600 MG, PRN
  4. STOOL SOFTENER [Concomitant]
  5. COLCHICINE [Concomitant]
     Dosage: 0.6 MG, TID
  6. INDOCIN [Concomitant]
  7. ALLOPURINOL [Concomitant]
     Dosage: 300 MG, QD
  8. TYLENOL W/ CODEINE NO. 3 [Concomitant]
  9. HYDROCODONE [Concomitant]
  10. MS CONTIN [Concomitant]
     Dosage: 40 MG, TID
  11. ZYLOPRIM [Concomitant]
     Dosage: 100 MG, 2 TABS DAILY
  12. PREDNISONE [Concomitant]
     Dosage: 10 MG, UNK
  13. RANITIDINE [Concomitant]
  14. COMPAZINE [Concomitant]
     Dosage: 10 MG, UNK
  15. CELEBREX [Concomitant]
  16. ORAMORPH SR [Concomitant]
     Dosage: 15 MG, QD

REACTIONS (34)
  - ANXIETY [None]
  - ARTHRITIS [None]
  - BONE DISORDER [None]
  - BONE PAIN [None]
  - CENTRAL VENOUS CATHETERISATION [None]
  - DECREASED APPETITE [None]
  - DECREASED INTEREST [None]
  - DIZZINESS [None]
  - DRY MOUTH [None]
  - ENDODONTIC PROCEDURE [None]
  - GENERAL PHYSICAL HEALTH DETERIORATION [None]
  - GINGIVAL SWELLING [None]
  - GINGIVITIS [None]
  - GOUT [None]
  - HEADACHE [None]
  - HYPERURICAEMIA [None]
  - INDURATION [None]
  - LIVER FUNCTION TEST ABNORMAL [None]
  - MASTICATION DISORDER [None]
  - METASTASES TO BONE [None]
  - MOUTH ULCERATION [None]
  - NIGHT SWEATS [None]
  - OEDEMA PERIPHERAL [None]
  - ORAL DISCOMFORT [None]
  - ORAL MUCOSAL ERYTHEMA [None]
  - OSTEOMYELITIS [None]
  - OSTEONECROSIS [None]
  - PAIN [None]
  - PAIN IN JAW [None]
  - PYREXIA [None]
  - RECTAL HAEMORRHAGE [None]
  - SWELLING [None]
  - TOOTH EXTRACTION [None]
  - TRISMUS [None]
